FAERS Safety Report 9718374 (Version 1)
Quarter: 2013Q4

REPORT INFORMATION
  Report Type: Spontaneous
  Country: US (occurrence: US)
  Receive Date: 20131125
  Receipt Date: 20131125
  Transmission Date: 20140711
  Serious: No
  Sender: FDA-Public Use
  Company Number: US-VIVUS-2013V1000302

PATIENT
  Age: 33 Year
  Sex: Female
  Weight: 85.35 kg

DRUGS (4)
  1. QSYMIA 3.75MG/23MG [Suspect]
     Indication: PRODUCT USED FOR UNKNOWN INDICATION
     Route: 048
     Dates: start: 20130223, end: 20130308
  2. QSYMIA 7.5MG/46MG [Suspect]
     Indication: PRODUCT USED FOR UNKNOWN INDICATION
     Route: 048
     Dates: start: 20130309
  3. QSYMIA 7.5MG/46MG [Suspect]
     Route: 048
     Dates: start: 20130309
  4. YASMIN [Concomitant]
     Indication: CONTRACEPTION
     Route: 048
     Dates: start: 2006

REACTIONS (1)
  - Flushing [Recovered/Resolved]
